FAERS Safety Report 6601821-7 (Version None)
Quarter: 2010Q1

REPORT INFORMATION
  Report Type: 
  Country: None (occurrence: None)
  Receive Date: 20100218
  Receipt Date: 20100212
  Transmission Date: 20100710
  Serious: Yes (Hospitalization, Other)
  Sender: FDA-Public Use
  Company Number: 2010SP007466

PATIENT
  Age: 64 Year
  Sex: Female
  Weight: 54 kg

DRUGS (20)
  1. TEMODAL [Suspect]
     Indication: LYMPHOMA
     Dosage: 240 MG; QD; PO
     Route: 048
     Dates: start: 20091224, end: 20091228
  2. METHOTREXATE [Suspect]
     Indication: LYMPHOMA
     Dosage: 5.6 GM; ONCE; IV
     Route: 042
     Dates: start: 20091224, end: 20091224
  3. OMEPRAZOLE [Suspect]
     Dosage: 20 MG;QPM
     Dates: start: 20091215, end: 20091228
  4. NEXIUM [Suspect]
     Dosage: 20 MG;QD
     Dates: start: 20100106
  5. NOVORAPID [Concomitant]
  6. LOVENOX [Concomitant]
  7. PERFALGAN [Concomitant]
  8. SOLU-MEDROL [Concomitant]
  9. ARIXTRA [Concomitant]
  10. TRAMADOL HCL [Concomitant]
  11. TRANXENE [Concomitant]
  12. DIFFU K [Concomitant]
  13. KARDEGIC [Concomitant]
  14. VITAMIN B1 AND B6 [Concomitant]
  15. TIAPRIDAL [Concomitant]
  16. SOLUPRED [Concomitant]
  17. IMOVANE [Concomitant]
  18. DUPHALAC [Concomitant]
  19. ACUPAN [Concomitant]
  20. POTASSIUM CHLORIDE [Concomitant]

REACTIONS (11)
  - ALANINE AMINOTRANSFERASE INCREASED [None]
  - ASPARTATE AMINOTRANSFERASE INCREASED [None]
  - BACTERIAL TEST POSITIVE [None]
  - DRUG HYPERSENSITIVITY [None]
  - HYPOXIA [None]
  - INTERSTITIAL LUNG DISEASE [None]
  - LEUKOPENIA [None]
  - LYMPHOPENIA [None]
  - NEUTROPENIA [None]
  - PLEURAL EFFUSION [None]
  - THROMBOCYTOPENIA [None]
